FAERS Safety Report 5289436-7 (Version None)
Quarter: 2007Q2

REPORT INFORMATION
  Report Type: 
  Country: None (occurrence: None)
  Receive Date: 20070406
  Receipt Date: 20070330
  Transmission Date: 20071010
  Serious: Yes (Other)
  Sender: FDA-Public Use
  Company Number: FR-AMGEN-UK217905

PATIENT
  Age: 36 Year
  Sex: Female

DRUGS (4)
  1. MIMPARA [Suspect]
     Indication: HYPERPARATHYROIDISM SECONDARY
     Route: 048
  2. PROGRAF [Concomitant]
     Route: 065
  3. CELLCEPT [Concomitant]
     Route: 065
  4. CORTANCYL [Concomitant]
     Route: 065

REACTIONS (1)
  - HEPATOTOXICITY [None]
